FAERS Safety Report 16285225 (Version 1)
Quarter: 2019Q2

REPORT INFORMATION
  Report Type: Spontaneous
  Country: US (occurrence: US)
  Receive Date: 20190508
  Receipt Date: 20190508
  Transmission Date: 20190711
  Serious: Yes (Life-Threatening)
  Sender: FDA-Public Use
  Company Number: US-BAYER-2019-085791

PATIENT
  Age: 55 Year
  Sex: Male

DRUGS (5)
  1. LORAZEPAM. [Concomitant]
     Active Substance: LORAZEPAM
  2. PHENOBARBITAL. [Concomitant]
     Active Substance: PHENOBARBITAL
     Indication: SEIZURE
  3. METHYLPREDNISOLONE. [Concomitant]
     Active Substance: METHYLPREDNISOLONE
     Indication: STATUS EPILEPTICUS
  4. GADOBUTROL. [Suspect]
     Active Substance: GADOBUTROL
     Indication: SPINAL MYELOGRAM
     Dosage: 12 ML, ONCE
     Route: 037
  5. FOSPHENYTOIN [Concomitant]
     Active Substance: FOSPHENYTOIN

REACTIONS (10)
  - Coma [None]
  - Seizure [None]
  - Contrast media deposition [None]
  - Contrast encephalopathy [None]
  - Incorrect route of product administration [None]
  - Neurotoxicity [None]
  - Product use in unapproved indication [None]
  - Memory impairment [None]
  - Haemodynamic instability [None]
  - Off label use [None]
